FAERS Safety Report 18082407 (Version 1)
Quarter: 2020Q3

REPORT INFORMATION
  Report Type: Spontaneous
  Country: US (occurrence: US)
  Receive Date: 20200728
  Receipt Date: 20200728
  Transmission Date: 20201103
  Serious: Yes (Other)
  Sender: FDA-Public Use
  Company Number: US-GILEAD-2020-0485522

PATIENT
  Age: 51 Year
  Sex: Male
  Weight: 83.45 kg

DRUGS (33)
  1. TRIUMEQ [Concomitant]
     Active Substance: ABACAVIR SULFATE\DOLUTEGRAVIR SODIUM\LAMIVUDINE
  2. THERA?M [Concomitant]
  3. KIONEX [Concomitant]
     Active Substance: SODIUM POLYSTYRENE SULFONATE
  4. PREDNISONE. [Concomitant]
     Active Substance: PREDNISONE
  5. AMLODIPINE [Concomitant]
     Active Substance: AMLODIPINE BESYLATE
  6. ACYCLOVIR [ACICLOVIR] [Concomitant]
     Active Substance: ACYCLOVIR
  7. LACTULOSE. [Concomitant]
     Active Substance: LACTULOSE
  8. ARICEPT [Concomitant]
     Active Substance: DONEPEZIL HYDROCHLORIDE
  9. CIPROFLOXACIN. [Concomitant]
     Active Substance: CIPROFLOXACIN
  10. ARANESP [Concomitant]
     Active Substance: DARBEPOETIN ALFA
  11. NADOLOL. [Concomitant]
     Active Substance: NADOLOL
  12. MEPHYTON [Concomitant]
     Active Substance: PHYTONADIONE
  13. BISACODYL. [Concomitant]
     Active Substance: BISACODYL
  14. DOXAZOSIN [Concomitant]
     Active Substance: DOXAZOSIN MESYLATE
  15. EPZICOM [Concomitant]
     Active Substance: ABACAVIR SULFATE\LAMIVUDINE
  16. ISENTRESS [Concomitant]
     Active Substance: RALTEGRAVIR POTASSIUM
  17. OSELTAMIVIR [Concomitant]
     Active Substance: OSELTAMIVIR
  18. DIPHENHYDRAMIN [Concomitant]
     Active Substance: DIPHENHYDRAMINE
  19. COLYTE [Concomitant]
     Active Substance: POLYETHYLENE GLYCOL 3350\POTASSIUM CHLORIDE\SODIUM BICARBONATE\SODIUM CHLORIDE\SODIUM SULFATE ANHYDROUS
  20. LORATADINE. [Concomitant]
     Active Substance: LORATADINE
  21. CALCITROL [CALCITRIOL] [Concomitant]
     Active Substance: CALCITRIOL
  22. SODIUM BICARBONATE. [Concomitant]
     Active Substance: SODIUM BICARBONATE
  23. NIFEDIPINE. [Concomitant]
     Active Substance: NIFEDIPINE
  24. LANTUS [Concomitant]
     Active Substance: INSULIN GLARGINE
  25. DAPSONE. [Concomitant]
     Active Substance: DAPSONE
  26. GLIPIZIDE. [Concomitant]
     Active Substance: GLIPIZIDE
  27. VITAMIN D [COLECALCIFEROL] [Concomitant]
     Active Substance: CHOLECALCIFEROL
  28. SILTUSSIN DM [Concomitant]
     Active Substance: DEXTROMETHORPHAN HYDROBROMIDE\GUAIFENESIN
  29. CALCIUM ACETATE. [Concomitant]
     Active Substance: CALCIUM ACETATE
  30. KALETRA [Concomitant]
     Active Substance: LOPINAVIR\RITONAVIR
  31. NOVASOURCE RENAL [Concomitant]
  32. TACROLIMUS. [Concomitant]
     Active Substance: TACROLIMUS
  33. VIREAD [Suspect]
     Active Substance: TENOFOVIR DISOPROXIL FUMARATE
     Indication: HEPATITIS B
     Dosage: UNK
     Route: 065
     Dates: start: 20100128, end: 2017

REACTIONS (5)
  - Renal failure [Not Recovered/Not Resolved]
  - Depression [Not Recovered/Not Resolved]
  - Emotional distress [Not Recovered/Not Resolved]
  - Chronic kidney disease [Not Recovered/Not Resolved]
  - Pain [Not Recovered/Not Resolved]

NARRATIVE: CASE EVENT DATE: 2011
